FAERS Safety Report 7047209-9 (Version None)
Quarter: 2010Q4

REPORT INFORMATION
  Report Type: 
  Country: None (occurrence: None)
  Receive Date: 20101015
  Receipt Date: 20101004
  Transmission Date: 20110411
  Serious: Yes (Other)
  Sender: FDA-Public Use
  Company Number: US-WATSON-2010-13468

PATIENT
  Age: 36 Year
  Sex: Male

DRUGS (1)
  1. ALORA [Suspect]
     Indication: HORMONE REPLACEMENT THERAPY
     Dosage: 0.1 MG, DAILY
     Route: 062

REACTIONS (1)
  - INTRACRANIAL MENINGIOMA MALIGNANT [None]
